FAERS Safety Report 9869515 (Version 2)
Quarter: 2014Q2

REPORT INFORMATION
  Report Type: Spontaneous
  Country: US (occurrence: US)
  Receive Date: 20140205
  Receipt Date: 20140603
  Transmission Date: 20141212
  Serious: No
  Sender: FDA-Public Use
  Company Number: US-009507513-1401USA009453

PATIENT
  Sex: Male

DRUGS (1)
  1. DR. SCHOLL^S CLEAR AWAY ONE STEP CLEAR STRIPS [Suspect]
     Indication: PRODUCT USED FOR UNKNOWN INDICATION
     Dosage: UNK, UNKNOWN
     Route: 061

REACTIONS (2)
  - Influenza [Unknown]
  - Wrong technique in drug usage process [Unknown]
